FAERS Safety Report 8783797 (Version 1)
Quarter: 2012Q4

REPORT INFORMATION
  Report Type: Spontaneous
  Country: US (occurrence: None)
  Receive Date: 20120829
  Receipt Date: 20120829
  Transmission Date: 20130627
  Serious: Yes (Other)
  Sender: FDA-Public Use
  Company Number: 1207-373

PATIENT
  Age: 89 Year
  Sex: Female

DRUGS (4)
  1. EYLEA [Suspect]
  2. SPIRONOLACTONE (SPIRONOLACTONE) [Concomitant]
  3. ATENOLOL (ATENOLOL CENTRUM) [Concomitant]
  4. CENTRUM  SILVER (CENTRUM SILVER) [Concomitant]

REACTIONS (3)
  - Eye injury [None]
  - Choroidal neovascularisation [None]
  - Detachment of retinal pigment epithelium [None]
